FAERS Safety Report 13185055 (Version 17)
Quarter: 2017Q4

REPORT INFORMATION
  Report Type: Spontaneous
  Country: US (occurrence: US)
  Receive Date: 20170203
  Receipt Date: 20171227
  Transmission Date: 20180320
  Serious: Yes (Hospitalization, Other)
  Sender: FDA-Public Use
  Company Number: US-PFIZER INC-2017045458

PATIENT
  Age: 58 Year
  Sex: Female
  Weight: 73 kg

DRUGS (20)
  1. RISPERIDONE. [Concomitant]
     Active Substance: RISPERIDONE
     Dosage: UNK
  2. XANAX [Concomitant]
     Active Substance: ALPRAZOLAM
     Dosage: UNK
  3. LISINOPRIL. [Concomitant]
     Active Substance: LISINOPRIL
     Dosage: UNK
  4. SUTENT [Suspect]
     Active Substance: SUNITINIB MALATE
     Dosage: 50 MG, CYCLIC (ONCE DAILY FOR 28 DAYS FOLLOWED BY 14 DAYS OFF)
     Route: 048
     Dates: start: 20170119, end: 201701
  5. SUTENT [Suspect]
     Active Substance: SUNITINIB MALATE
     Dosage: 50 MG, CYCLIC (28 DAYS ON/14 DAYS OFF)
     Route: 048
     Dates: start: 20170123, end: 2017
  6. TRIPHROCAPS [Concomitant]
     Active Substance: ASCORBIC ACID\BIOTIN\CALCIUM PANTOTHENATE\CYANOCOBALAMIN\FOLIC ACID\NIACINAMIDE\PYRIDOXINE HYDROCHLORIDE\RIBOFLAVIN\THIAMINE HYDROCHLORIDE
     Dosage: UNK
  7. RANEXA [Concomitant]
     Active Substance: RANOLAZINE
     Dosage: UNK
  8. TYLENOL [Concomitant]
     Active Substance: ACETAMINOPHEN
     Dosage: UNK
  9. SUTENT [Suspect]
     Active Substance: SUNITINIB MALATE
     Dosage: 50 MG, CYCLIC (DAILY FOR 28 DAYS ON/14 DAYS OFF)
     Route: 048
     Dates: start: 201701
  10. OXYCODONE [Concomitant]
     Active Substance: OXYCODONE
     Dosage: UNK
  11. COREG [Concomitant]
     Active Substance: CARVEDILOL
     Dosage: UNK
  12. GABAPENTIN. [Concomitant]
     Active Substance: GABAPENTIN
     Dosage: UNK
  13. PROTONIX [Concomitant]
     Active Substance: PANTOPRAZOLE SODIUM
     Dosage: UNK
  14. LIPITOR [Concomitant]
     Active Substance: ATORVASTATIN CALCIUM
     Indication: BLOOD CHOLESTEROL ABNORMAL
     Dosage: UNK
  15. NITROSTAT [Concomitant]
     Active Substance: NITROGLYCERIN
     Dosage: UNK, AS NEEDED
  16. SUTENT [Suspect]
     Active Substance: SUNITINIB MALATE
     Indication: RENAL CANCER STAGE IV
     Dosage: 50 MG, CYCLIC (ONCE DAILY FOR 28 DAYS FOLLOWED BY 14 DAYS OFF)
     Route: 048
     Dates: start: 201601
  17. SUTENT [Suspect]
     Active Substance: SUNITINIB MALATE
     Dosage: 37.5 MG, UNK
  18. ASPIRIN. [Concomitant]
     Active Substance: ASPIRIN
     Dosage: UNK
  19. PROCARDIA [Concomitant]
     Active Substance: NIFEDIPINE
     Dosage: UNK
  20. CLOPIDOGREL [Concomitant]
     Active Substance: CLOPIDOGREL BISULFATE
     Dosage: UNK

REACTIONS (38)
  - Hypertension [Recovered/Resolved]
  - Diarrhoea [Recovering/Resolving]
  - Oral pain [Unknown]
  - Palmar-plantar erythrodysaesthesia syndrome [Unknown]
  - Oral mucosal blistering [Unknown]
  - Melanocytic naevus [Unknown]
  - Anaemia [Unknown]
  - Decreased appetite [Unknown]
  - Condition aggravated [Unknown]
  - Hyperaesthesia [Recovering/Resolving]
  - Burning sensation [Unknown]
  - Ageusia [Not Recovered/Not Resolved]
  - Alopecia [Unknown]
  - Blood urine present [Unknown]
  - Constipation [Recovering/Resolving]
  - Blister [Unknown]
  - Heart rate decreased [Unknown]
  - Weight decreased [Unknown]
  - Skin exfoliation [Unknown]
  - Rash macular [Unknown]
  - Fatigue [Unknown]
  - Skin discolouration [Unknown]
  - Pain in extremity [Unknown]
  - Feeling abnormal [Unknown]
  - Angina pectoris [Unknown]
  - Tumour pain [Unknown]
  - Vulvovaginal pruritus [Unknown]
  - Musculoskeletal pain [Unknown]
  - Pain [Unknown]
  - Joint range of motion decreased [Recovering/Resolving]
  - Hypoaesthesia oral [Unknown]
  - Sciatica [Unknown]
  - Bone pain [Unknown]
  - Myalgia [Unknown]
  - Back pain [Unknown]
  - Gait disturbance [Unknown]
  - Vomiting [Recovering/Resolving]
  - Asthenia [Unknown]

NARRATIVE: CASE EVENT DATE: 20170127
